FAERS Safety Report 7500419-6 (Version None)
Quarter: 2011Q2

REPORT INFORMATION
  Report Type: 
  Country: None (occurrence: None)
  Receive Date: 20110524
  Receipt Date: 20110315
  Transmission Date: 20111010
  Serious: No
  Sender: FDA-Public Use
  Company Number: US-BRISTOL-MYERS SQUIBB COMPANY-15591514

PATIENT
  Age: 75 Year
  Sex: Male
  Weight: 104 kg

DRUGS (4)
  1. ONGLYZA [Suspect]
     Indication: DIABETES MELLITUS
     Dosage: FOR 3 DAYS 25FEB,26FEB,27FEB11
     Route: 048
     Dates: start: 20110225
  2. METFORMIN HCL [Concomitant]
  3. ADVAIR DISKUS 100/50 [Concomitant]
  4. GLUCOTROL [Concomitant]

REACTIONS (2)
  - HEADACHE [None]
  - DIZZINESS [None]
